FAERS Safety Report 19748771 (Version 1)
Quarter: 2021Q3

REPORT INFORMATION
  Report Type: Spontaneous
  Country: US (occurrence: US)
  Receive Date: 20210825
  Receipt Date: 20210825
  Transmission Date: 20211014
  Serious: Yes (Hospitalization)
  Sender: FDA-Public Use
  Company Number: None

PATIENT
  Age: 48 Year
  Sex: Female

DRUGS (6)
  1. TRAMADOL 50MG HCL TABLET [Concomitant]
  2. METOCLOPRAM 10MG TABLET [Concomitant]
  3. PROCHLORPER 10 MG TABLET [Concomitant]
  4. PIQRAY [Suspect]
     Active Substance: ALPELISIB
     Indication: BREAST CANCER
     Route: 048
     Dates: end: 20210718
  5. ONDANSETRON 4MG ODT TABLET [Concomitant]
  6. OMEPRAZOLE 20MG CAPSULE [Concomitant]
     Active Substance: OMEPRAZOLE

REACTIONS (3)
  - Dysuria [None]
  - Nausea [None]
  - Vomiting [None]

NARRATIVE: CASE EVENT DATE: 20210715
